FAERS Safety Report 25845655 (Version 3)
Quarter: 2025Q4

REPORT INFORMATION
  Report Type: Spontaneous
  Country: EU (occurrence: EU)
  Receive Date: 20250925
  Receipt Date: 20251014
  Transmission Date: 20260118
  Serious: Yes (Other)
  Sender: GLAXOSMITHKLINE
  Company Number: EU-GSK-FI2025EME120185

PATIENT
  Age: 71 Year
  Sex: Female

DRUGS (2)
  1. MOMELOTINIB DIHYDROCHLORIDE [Suspect]
     Active Substance: MOMELOTINIB DIHYDROCHLORIDE
     Indication: Myelofibrosis
     Dosage: 200 MG, QD
  2. HYDREA [Concomitant]
     Active Substance: HYDROXYUREA
     Indication: Thrombocytosis
     Dosage: 500 MG, BID

REACTIONS (1)
  - Peripheral sensorimotor neuropathy [Not Recovered/Not Resolved]
